FAERS Safety Report 6526795-9 (Version None)
Quarter: 2010Q1

REPORT INFORMATION
  Report Type: 
  Country: None (occurrence: None)
  Receive Date: 20100104
  Receipt Date: 20100104
  Transmission Date: 20100710
  Serious: Yes (Other)
  Sender: FDA-Public Use
  Company Number: None

PATIENT
  Age: 85 Year
  Sex: Female
  Weight: 68.9467 kg

DRUGS (1)
  1. ALENDRONATE SODIUM [Suspect]
     Indication: OSTEOPENIA
     Dosage: WEEKLY MOUTH 2008-2009 APPROX
     Route: 048
     Dates: start: 20080101, end: 20090101

REACTIONS (4)
  - ABDOMINAL DISCOMFORT [None]
  - COLITIS COLLAGENOUS [None]
  - OESOPHAGEAL DISCOMFORT [None]
  - PRODUCT SUBSTITUTION ISSUE [None]
